FAERS Safety Report 8894489 (Version 2)
Quarter: 2013Q1

REPORT INFORMATION
  Report Type: Spontaneous
  Country: US (occurrence: US)
  Receive Date: 20121108
  Receipt Date: 20130114
  Transmission Date: 20140127
  Serious: No
  Sender: FDA-Public Use
  Company Number: US-009507513-1211USA001998

PATIENT
  Sex: Female

DRUGS (2)
  1. PEGINTRON [Suspect]
     Indication: HEPATITIS C
     Dosage: 64 MICROGRAM, QW
     Route: 058
     Dates: start: 20120827, end: 2012
  2. RIBAPAK [Suspect]

REACTIONS (1)
  - General physical health deterioration [Unknown]
